FAERS Safety Report 11797023 (Version 2)
Quarter: 2016Q4

REPORT INFORMATION
  Report Type: Spontaneous
  Country: US (occurrence: US)
  Receive Date: 20151203
  Receipt Date: 20161129
  Transmission Date: 20170206
  Serious: Yes (Other)
  Sender: FDA-Public Use
  Company Number: US-SA-2015SA196406

PATIENT
  Age: 57 Year

DRUGS (2)
  1. ASPIRIN. [Suspect]
     Active Substance: ASPIRIN
     Route: 065
     Dates: start: 201206, end: 201208
  2. PLAVIX [Suspect]
     Active Substance: CLOPIDOGREL BISULFATE
     Indication: PERIPHERAL ARTERIAL OCCLUSIVE DISEASE
     Route: 065
     Dates: start: 201206, end: 201208

REACTIONS (13)
  - General physical condition abnormal [Unknown]
  - Balance disorder [Unknown]
  - Visual field defect [Unknown]
  - Cerebral haemorrhage [Unknown]
  - Fine motor skill dysfunction [Unknown]
  - Impaired quality of life [Unknown]
  - Pain [Unknown]
  - Ischaemia [Unknown]
  - Asthenia [Unknown]
  - Haemorrhage [Unknown]
  - Activities of daily living impaired [Unknown]
  - Disturbance in attention [Unknown]
  - Neurologic neglect syndrome [Unknown]

NARRATIVE: CASE EVENT DATE: 2012
